FAERS Safety Report 12502827 (Version 4)
Quarter: 2016Q3

REPORT INFORMATION
  Report Type: Report from Study
  Country: JP (occurrence: JP)
  Receive Date: 20160628
  Receipt Date: 20160824
  Transmission Date: 20161109
  Serious: Yes (Hospitalization, Other)
  Sender: FDA-Public Use
  Company Number: JP-ROCHE-1780213

PATIENT
  Age: 64 Year
  Sex: Female
  Weight: 43 kg

DRUGS (6)
  1. DENOTAS [Concomitant]
     Active Substance: CALCIUM CARBONATE\CHOLECALCIFEROL\MAGNESIUM CARBONATE
     Indication: PROPHYLAXIS
     Route: 048
     Dates: start: 20160512, end: 20160614
  2. ERLOTINIB [Suspect]
     Active Substance: ERLOTINIB
     Indication: LUNG ADENOCARCINOMA
     Dosage: TREATMENT LINE: 1ST?COMPLETED TREATMENT CYCLE NUMBER: 1
     Route: 048
     Dates: start: 20160516, end: 20160601
  3. BEVACIZUMAB [Suspect]
     Active Substance: BEVACIZUMAB
     Indication: LUNG ADENOCARCINOMA
     Dosage: 1ST TREATMENT LINE: COMPLETED TREATMENT CYCLE1
     Route: 041
     Dates: start: 20160516, end: 20160608
  4. MOBIC [Concomitant]
     Active Substance: MELOXICAM
     Indication: CANCER PAIN
     Route: 048
     Dates: start: 20160513, end: 20160614
  5. DENOSUMAB [Concomitant]
     Active Substance: DENOSUMAB
     Indication: METASTASES TO BONE
     Route: 058
     Dates: start: 20160512
  6. OXYCODONE [Suspect]
     Active Substance: OXYCODONE
     Indication: CANCER PAIN
     Route: 048
     Dates: start: 20160513, end: 20160704

REACTIONS (5)
  - Ileus paralytic [Not Recovered/Not Resolved]
  - Anaemia [Unknown]
  - Mechanical ileus [Recovered/Resolved]
  - Gastric ulcer [Unknown]
  - Colitis ischaemic [Unknown]

NARRATIVE: CASE EVENT DATE: 20160608
